FAERS Safety Report 6693672-2 (Version None)
Quarter: 2010Q2

REPORT INFORMATION
  Report Type: 
  Country: None (occurrence: None)
  Receive Date: 20100420
  Receipt Date: 20100405
  Transmission Date: 20101027
  Serious: Yes (Life-Threatening, Hospitalization)
  Sender: FDA-Public Use
  Company Number: B0646596A

PATIENT
  Sex: Female

DRUGS (4)
  1. RETROVIR [Suspect]
     Indication: ANTIRETROVIRAL THERAPY
     Dosage: 2 MG/KG/FOUR TIMES PER DAY/ORAL
     Route: 048
  2. RETROVIR [Suspect]
     Indication: PROPHYLAXIS AGAINST HIV INFECTION
     Dosage: TRANSPLACENTARY
     Route: 064
  3. EPIVIR [Suspect]
     Indication: PROPHYLAXIS AGAINST HIV INFECTION
     Dosage: TRANSPLACENTARY
     Route: 064
  4. NEVIRAPINE [Suspect]
     Indication: PROPHYLAXIS AGAINST HIV INFECTION
     Dosage: TRANSPLACENTARY
     Route: 064

REACTIONS (9)
  - CAESAREAN SECTION [None]
  - COUGH [None]
  - DYSPNOEA [None]
  - HEPATIC STEATOSIS [None]
  - LACTIC ACIDOSIS [None]
  - MATERNAL DRUGS AFFECTING FOETUS [None]
  - METABOLIC ACIDOSIS [None]
  - PYREXIA [None]
  - RENAL FAILURE ACUTE [None]
